FAERS Safety Report 11724224 (Version 14)
Quarter: 2016Q3

REPORT INFORMATION
  Report Type: Spontaneous
  Country: US (occurrence: US)
  Receive Date: 20151111
  Receipt Date: 20160801
  Transmission Date: 20161109
  Serious: No
  Sender: FDA-Public Use
  Company Number: US-PFIZER INC-2015333239

PATIENT
  Age: 56 Year
  Sex: Male
  Weight: 118 kg

DRUGS (43)
  1. SODIUM CHLORIDE. [Concomitant]
     Active Substance: SODIUM CHLORIDE
     Dosage: 500 ML, AS NEEDED (INFUSE 500ML RATE 999ML/HOUR)
  2. LISINOPRIL. [Concomitant]
     Active Substance: LISINOPRIL
     Dosage: 10 MG, 2X/DAY
  3. METOPROLOL. [Concomitant]
     Active Substance: METOPROLOL
     Dosage: UNK
     Dates: end: 20151111
  4. BUSPIN [Concomitant]
     Indication: ANXIETY
     Dosage: 10 MG, 2X/DAY
  5. SUTENT [Suspect]
     Active Substance: SUNITINIB MALATE
     Dosage: 50 MG, CYCLIC (28 DAYS ON/14 DAYS OFF)
     Dates: start: 20151006
  6. BUSPIRONE [Concomitant]
     Active Substance: BUSPIRONE HYDROCHLORIDE
     Dosage: 10 MG, 2X/DAY
     Route: 048
  7. SENNA [Concomitant]
     Active Substance: SENNA LEAF\SENNOSIDES\SENNOSIDES A AND B
     Indication: CONSTIPATION
     Dosage: UNK
  8. MORPHINE SULFATE. [Concomitant]
     Active Substance: MORPHINE SULFATE
     Indication: PAIN
     Dosage: 5 MG, AS NEEDED  (Q4H PRN;10 MG/ML)
     Route: 042
  9. NORCO [Concomitant]
     Active Substance: ACETAMINOPHEN\HYDROCODONE BITARTRATE
     Dosage: 1 DF, 4X/DAY (10/325 MG GIVE 1 TABLET/ HYDROCODONE BITARTRATE10 MG, PARACETAMOL 325 MG)
     Route: 048
  10. ZOFRAN [Concomitant]
     Active Substance: ONDANSETRON HYDROCHLORIDE
     Indication: NAUSEA
     Dosage: 4 MG, AS NEEDED  (2MG/ML )
     Route: 042
  11. SODIUM CHLORIDE. [Concomitant]
     Active Substance: SODIUM CHLORIDE
     Dosage: 250 ML, UNK (0.9% INFUSION 250ML -INFUSE 250 ML RATE 20 ML /HOUR ONE TIME ONLY)
     Route: 042
  12. RANITIDINE. [Concomitant]
     Active Substance: RANITIDINE
     Dosage: 150 MG, DAILY
     Route: 048
  13. ACETAMINOPHEN. [Concomitant]
     Active Substance: ACETAMINOPHEN
     Indication: BODY TEMPERATURE INCREASED
     Dosage: UNK (650MG/20 ML )
  14. TYLENOL [Concomitant]
     Active Substance: ACETAMINOPHEN
     Indication: BODY TEMPERATURE INCREASED
     Dosage: UNK (650 MG 20 ML; GIVE 650 MG ORAL Q4H)
     Route: 048
  15. DEXTROSE. [Concomitant]
     Active Substance: DEXTROSE
     Dosage: UNK (5% /0.45%NS W/KCL 20MEQ; INFUSE 1,000 ML RATE 100 ML/HOUR )
  16. BENADRYL [Concomitant]
     Active Substance: DIPHENHYDRAMINE HYDROCHLORIDE
     Indication: PRURITUS
     Dosage: 12.5 MG, UNK(50 MG/ML  /MAY REPEAT 12.5 MG AFTER 30 MINUTES IF NO RELIEF )
     Route: 042
  17. ALBUTEROL. [Concomitant]
     Active Substance: ALBUTEROL
     Indication: WHEEZING
     Dosage: 3 ML, AS NEEDED (INHALATION SOLUTION 0.083%/ML)
     Route: 045
  18. DEXTROSE. [Concomitant]
     Active Substance: DEXTROSE
     Indication: BLOOD GLUCOSE DECREASED
     Dosage: 25 ML, AS NEEDED (Q10M PRN)
     Route: 042
  19. SODIUM CHLORIDE. [Concomitant]
     Active Substance: SODIUM CHLORIDE
     Dosage: 1000 ML, UNK(0.9% INFUSION 1000ML -INFUSE 1000ML RATE 100ML/HOUR)
  20. LISINOPRIL. [Concomitant]
     Active Substance: LISINOPRIL
     Indication: BLOOD PRESSURE ABNORMAL
     Dosage: 10 MG, 2X/DAY
     Route: 048
  21. BUSPAR [Concomitant]
     Active Substance: BUSPIRONE HYDROCHLORIDE
     Dosage: 10 MG, 2X/DAY
     Route: 048
  22. DILAUDID [Concomitant]
     Active Substance: HYDROMORPHONE HYDROCHLORIDE
     Dosage: 0.2 MG, UNK (1MG/ML)
     Route: 042
  23. OXYGEN. [Concomitant]
     Active Substance: OXYGEN
     Indication: OXYGEN SATURATION ABNORMAL
     Dosage: UNK(8 L/M PER SIMPLE MASK)
  24. SUTENT [Suspect]
     Active Substance: SUNITINIB MALATE
     Indication: RENAL CANCER STAGE IV
     Dosage: 50 MG, 1 TAB DAILY 28
     Route: 048
     Dates: start: 201510
  25. SUTENT [Suspect]
     Active Substance: SUNITINIB MALATE
     Dosage: 50 MG, CYCLIC (28 DAYS ON AND TWO WEEKS OFF)
     Route: 048
     Dates: start: 201510
  26. DIAZEPAM. [Concomitant]
     Active Substance: DIAZEPAM
     Indication: AGITATION
  27. ONDANSETRON [Concomitant]
     Active Substance: ONDANSETRON
     Indication: NAUSEA
     Dosage: 4 MG, AS NEEDED (2MG/ML)
     Route: 042
  28. SODIUM CHLORIDE. [Concomitant]
     Active Substance: SODIUM CHLORIDE
     Dosage: 1000 ML, UNK (INFUSE 1000ML RATE 50ML/ HOUR)
  29. ACETAMINOPHEN. [Concomitant]
     Active Substance: ACETAMINOPHEN
     Indication: BODY TEMPERATURE INCREASED
     Dosage: 325 MG, UNK
     Route: 048
  30. TYLENOL [Concomitant]
     Active Substance: ACETAMINOPHEN
     Indication: BODY TEMPERATURE INCREASED
     Dosage: 325 MG, UNK
     Route: 048
  31. LOVENOX [Concomitant]
     Active Substance: ENOXAPARIN SODIUM
     Dosage: 30 MG, DAILY (30 MG/0.3ML )
     Route: 058
  32. NARCAN [Concomitant]
     Active Substance: NALOXONE HYDROCHLORIDE
     Indication: RESPIRATORY RATE
     Dosage: 0.4 MG, UNK(9 ML NORMAL SALINE IV EVERY 2 MINUTES)
     Route: 042
  33. ZOFRAN [Concomitant]
     Active Substance: ONDANSETRON HYDROCHLORIDE
     Indication: VOMITING
  34. DIAZEPAM. [Concomitant]
     Active Substance: DIAZEPAM
     Indication: ANXIETY
     Dosage: 2.5 MG, AS NEEDED (5MG/ML 2.5 MG/PUSH Q10M PRN)
     Route: 042
  35. DIPHENHYDRAMINE. [Concomitant]
     Active Substance: DIPHENHYDRAMINE
     Indication: HYPERSENSITIVITY
     Dosage: 12.5 MG, AS NEEDED (VIAL 50MG/ML)
     Route: 042
  36. NALOXONE [Concomitant]
     Active Substance: NALOXONE
     Indication: RESPIRATORY RATE DECREASED
     Dosage: 0.1 MG, AS NEEDED (0.4MG/ML )
     Route: 042
  37. ONDANSETRON [Concomitant]
     Active Substance: ONDANSETRON
     Indication: VOMITING
  38. SODIUM CHLORIDE. [Concomitant]
     Active Substance: SODIUM CHLORIDE
     Indication: BLOOD PRESSURE DECREASED
     Dosage: 500 ML, AS NEEDED (0.9% INFUSION 500ML IVPB-INFUSE 500ML RATE 999 ML/HOUR)
     Route: 042
  39. SCLEROSOL [Concomitant]
     Active Substance: TALC
     Dosage: UNK, SINGLE
     Route: 034
  40. TYLENOL [Concomitant]
     Active Substance: ACETAMINOPHEN
     Indication: BODY TEMPERATURE INCREASED
     Dosage: 650 MG, AS NEEDED (INSERT 650 MG Q4H PRN)
     Route: 054
  41. LEVOFLOXACIN PREMIX [Concomitant]
     Dosage: 250 MG, UNK (250MG/50ML)
     Route: 042
  42. ZOFRAN [Concomitant]
     Active Substance: ONDANSETRON HYDROCHLORIDE
     Indication: NAUSEA
     Dosage: 8 MG, 3X/DAY (EVERY 8 HOURS)
     Route: 048
     Dates: start: 20151005
  43. DILAUDID [Concomitant]
     Active Substance: HYDROMORPHONE HYDROCHLORIDE
     Indication: PROCEDURAL PAIN
     Dosage: 0.5 MG, AS NEEDED (2MG/ML / Q5M PRN)
     Route: 042

REACTIONS (29)
  - Somnolence [Unknown]
  - Decreased appetite [Recovered/Resolved]
  - Weight increased [Unknown]
  - Dizziness [Not Recovered/Not Resolved]
  - Procedural pain [Unknown]
  - Erythema [Unknown]
  - Hair colour changes [Unknown]
  - Memory impairment [Not Recovered/Not Resolved]
  - White blood cell count decreased [Unknown]
  - Headache [Unknown]
  - Ageusia [Recovered/Resolved]
  - Drug dose omission [Unknown]
  - Skin irritation [Unknown]
  - Fatigue [Recovered/Resolved]
  - Feeling abnormal [Not Recovered/Not Resolved]
  - Dysgeusia [Unknown]
  - White blood cell disorder [Unknown]
  - Nausea [Unknown]
  - Disorientation [Not Recovered/Not Resolved]
  - Fluid intake reduced [Unknown]
  - Cognitive disorder [Unknown]
  - Abdominal discomfort [Unknown]
  - Prostatic specific antigen increased [Unknown]
  - Asthenia [Unknown]
  - Blood cholesterol increased [Unknown]
  - Drug prescribing error [Unknown]
  - Diarrhoea [Unknown]
  - Dry skin [Unknown]
  - Insomnia [Not Recovered/Not Resolved]

NARRATIVE: CASE EVENT DATE: 2015
